FAERS Safety Report 6520374-5 (Version None)
Quarter: 2009Q4

REPORT INFORMATION
  Report Type: 
  Country: None (occurrence: None)
  Receive Date: 20091229
  Receipt Date: 20081217
  Transmission Date: 20100525
  Serious: Yes (Life-Threatening, Hospitalization, Other)
  Sender: FDA-Public Use
  Company Number: DK-JNJFOC-20081202829

PATIENT
  Sex: Male
  Weight: 94 kg

DRUGS (5)
  1. REMICADE [Suspect]
     Dosage: 2ND DOSE
     Route: 042
  2. REMICADE [Suspect]
     Indication: RHEUMATOID ARTHRITIS
     Dosage: 1ST DOSE
     Route: 042
  3. METHOTREXATE [Concomitant]
  4. PLAQUENIL [Concomitant]
  5. CENTYL WITH POTASSIUM [Concomitant]

REACTIONS (1)
  - ACUTE MYOCARDIAL INFARCTION [None]
